FAERS Safety Report 4774089-4 (Version None)
Quarter: 2005Q3

REPORT INFORMATION
  Report Type: 
  Country: None (occurrence: None)
  Receive Date: 20050919
  Receipt Date: 20050908
  Transmission Date: 20060218
  Serious: Yes (Hospitalization)
  Sender: FDA-Public Use
  Company Number: 200510566BNE

PATIENT
  Age: 77 Year
  Sex: Female

DRUGS (5)
  1. MOXIFLOXACIN HCL [Suspect]
     Indication: LOWER RESPIRATORY TRACT INFECTION
     Dosage: 400 MG, TOTAL DAILY, ORAL
     Route: 048
     Dates: start: 20050809, end: 20050812
  2. LEVOTHYROXINE SODIUM [Concomitant]
  3. BENDROFLUAZIDE [Concomitant]
  4. ALBUTEROL SULFATE HFA [Concomitant]
  5. OMEPRAZOLE [Concomitant]

REACTIONS (1)
  - DIARRHOEA HAEMORRHAGIC [None]
